FAERS Safety Report 8960592 (Version 1)
Quarter: 2012Q4

REPORT INFORMATION
  Report Type: Spontaneous
  Country: US (occurrence: None)
  Receive Date: 20121130
  Receipt Date: 20121130
  Transmission Date: 20130627
  Serious: Yes (Death, Other)
  Sender: FDA-Public Use
  Company Number: TPA2012A04683

PATIENT
  Age: 85 Year
  Sex: Male
  Weight: 94.35 kg

DRUGS (2)
  1. ACTOS (PIOGLITAZONE HYDROCHLORIDE) [Suspect]
     Dates: start: 20080618, end: 20091214
  2. ONGLYZA (SAXAGLIPTIN HYDROCHLORIDE) [Concomitant]

REACTIONS (3)
  - Bladder cancer [None]
  - Metastases to lung [None]
  - Metastases to lymph nodes [None]
